FAERS Safety Report 7396261-X (Version None)
Quarter: 2011Q2

REPORT INFORMATION
  Report Type: 
  Country: None (occurrence: None)
  Receive Date: 20110406
  Receipt Date: 20110329
  Transmission Date: 20111010
  Serious: Yes (Hospitalization)
  Sender: FDA-Public Use
  Company Number: BR-US-EMD SERONO, INC.-7050750

PATIENT
  Sex: Female

DRUGS (1)
  1. REBIF [Suspect]
     Indication: RELAPSING-REMITTING MULTIPLE SCLEROSIS
     Dates: start: 20060401

REACTIONS (4)
  - DEAFNESS UNILATERAL [None]
  - PRURITUS GENERALISED [None]
  - BLINDNESS UNILATERAL [None]
  - PARAESTHESIA [None]
